FAERS Safety Report 4949421-9 (Version None)
Quarter: 2006Q1

REPORT INFORMATION
  Report Type: 
  Country: None (occurrence: None)
  Receive Date: 20060315
  Receipt Date: 20060303
  Transmission Date: 20060701
  Serious: Yes (Hospitalization, Other)
  Sender: FDA-Public Use
  Company Number: 2006032625

PATIENT
  Sex: Female
  Weight: 72.5755 kg

DRUGS (17)
  1. LIPITOR [Suspect]
     Indication: BLOOD CHOLESTEROL INCREASED
     Dosage: UNK (20 MG), UNKNOWN
     Route: 065
  2. PENICILLIN [Suspect]
     Indication: ILL-DEFINED DISORDER
     Dosage: UNKNOWN
     Route: 065
  3. PLAVIX [Suspect]
     Indication: STENT PLACEMENT
     Dosage: UNKNOWN
     Route: 065
     Dates: start: 20050301
  4. GLUCOSAMINE W/CHONDROITIN SULFATES (ASCORBIC ACID, CHONDROITIN SULFATE [Concomitant]
  5. SYNTHROID [Concomitant]
  6. CALTRATE + D (CALCIUM CARBONATE, COLECALCIFEROL) [Concomitant]
  7. FOLIC ACID [Concomitant]
  8. KLOR-CON [Concomitant]
  9. FUROSEMIDE [Concomitant]
  10. ASPIRIN [Concomitant]
  11. VITAMIN B1 TAB [Concomitant]
  12. VITAMIN B6 (VITAMIN B6) [Concomitant]
  13. VITAMIN C (VITAMIN C) [Concomitant]
  14. VITAMIN E [Concomitant]
  15. MULTIVITAMIN [Concomitant]
  16. LECITHIN (LECITHIN) [Concomitant]
  17. ZINC (ZINC) [Concomitant]

REACTIONS (10)
  - ARTHRITIS [None]
  - BLOOD CHOLESTEROL INCREASED [None]
  - CONTUSION [None]
  - CORONARY ARTERY OCCLUSION [None]
  - DRUG HYPERSENSITIVITY [None]
  - ELECTROCARDIOGRAM ABNORMAL [None]
  - KNEE ARTHROPLASTY [None]
  - MALAISE [None]
  - MEDICATION ERROR [None]
  - PHARYNGOLARYNGEAL PAIN [None]
